FAERS Safety Report 16444060 (Version 5)
Quarter: 2019Q3

REPORT INFORMATION
  Report Type: Report from Study
  Country: MX (occurrence: MX)
  Receive Date: 20190618
  Receipt Date: 20190816
  Transmission Date: 20191004
  Serious: Yes (Death, Life-Threatening, Hospitalization, Other)
  Sender: FDA-Public Use
  Company Number: MX-SA-2019SA145851

PATIENT
  Age: 17 Year
  Sex: Female
  Weight: 48 kg

DRUGS (1)
  1. ALEMTUZUMAB [Suspect]
     Active Substance: ALEMTUZUMAB
     Indication: MULTIPLE SCLEROSIS
     Dosage: 12 MG, QD
     Route: 041
     Dates: start: 20190419, end: 20190423

REACTIONS (32)
  - White blood cell count decreased [Unknown]
  - Splenomegaly [Recovered/Resolved]
  - Mean cell haemoglobin concentration decreased [Unknown]
  - Urine abnormality [Unknown]
  - White blood cells urine positive [Not Recovered/Not Resolved]
  - Gastrostomy [Unknown]
  - Tracheostomy [Unknown]
  - Off label use [Unknown]
  - Lymphocyte percentage decreased [Unknown]
  - Pyrexia [Not Recovered/Not Resolved]
  - Sinusitis [Not Recovered/Not Resolved]
  - Red cell distribution width increased [Unknown]
  - Protein urine present [Unknown]
  - Lymphopenia [Not Recovered/Not Resolved]
  - Lymphocyte count decreased [Unknown]
  - Urinary tract infection [Unknown]
  - Pneumonitis [Recovered/Resolved]
  - Leukopenia [Not Recovered/Not Resolved]
  - Pancytopenia [Not Recovered/Not Resolved]
  - Hospitalisation [Unknown]
  - Red blood cells urine positive [Not Recovered/Not Resolved]
  - Hepatitis [Not Recovered/Not Resolved]
  - Ascites [Recovered/Resolved]
  - Gamma-glutamyltransferase increased [Unknown]
  - Eosinophil percentage decreased [Unknown]
  - Pulmonary haemorrhage [Fatal]
  - Thrombocytopenia [Not Recovered/Not Resolved]
  - Pyrexia [Not Recovered/Not Resolved]
  - Pericarditis [Not Recovered/Not Resolved]
  - Hepatomegaly [Recovered/Resolved]
  - Blood bilirubin increased [Unknown]
  - Haemoglobin decreased [Unknown]

NARRATIVE: CASE EVENT DATE: 20190419
